FAERS Safety Report 7183090-5 (Version None)
Quarter: 2010Q4

REPORT INFORMATION
  Report Type: 
  Country: None (occurrence: None)
  Receive Date: 20101208
  Receipt Date: 20101117
  Transmission Date: 20110411
  Serious: Yes (Hospitalization)
  Sender: FDA-Public Use
  Company Number: GER/UKI/10/0016678

PATIENT
  Age: 63 Year
  Sex: Male
  Weight: 122.7 kg

DRUGS (9)
  1. AMLODIPINE [Suspect]
     Indication: PRODUCT USED FOR UNKNOWN INDICATION
     Dosage: 10 MG
  2. IRBESARTAN [Suspect]
     Indication: PRODUCT USED FOR UNKNOWN INDICATION
     Dosage: 150 MG
  3. EXENATIDE (EXENATIDE) [Suspect]
     Indication: TYPE 2 DIABETES MELLITUS
     Dosage: INITIALLY 5 MICROGRAM TWICE DAILY AND TITRATED TO 10 MICROGRAM TWICE DAILY IN 4 WEEKS.
  4. ATENOLOL [Suspect]
     Indication: PRODUCT USED FOR UNKNOWN INDICATION
  5. RAMIPRIL [Suspect]
     Indication: PRODUCT USED FOR UNKNOWN INDICATION
     Dosage: 7.5 MG
  6. FUROSEMIDE [Concomitant]
  7. GLICLAZIDE (GLICLAZIDE) [Concomitant]
  8. LEVEMIR [Concomitant]
  9. METFORMIN HCL [Concomitant]

REACTIONS (7)
  - BLOOD BICARBONATE DECREASED [None]
  - DEHYDRATION [None]
  - HYPOPHAGIA [None]
  - HYPOTENSION [None]
  - NEPHROPATHY TOXIC [None]
  - RENAL FAILURE ACUTE [None]
  - WEIGHT DECREASED [None]
